FAERS Safety Report 10483465 (Version 1)
Quarter: 2014Q3

REPORT INFORMATION
  Report Type: Spontaneous
  Country: US (occurrence: None)
  Receive Date: 20140929
  Receipt Date: 20140929
  Transmission Date: 20150326
  Serious: Yes (Death, Hospitalization)
  Sender: FDA-Public Use
  Company Number: None

PATIENT
  Age: 68 Year
  Sex: Female
  Weight: 68.3 kg

DRUGS (2)
  1. TAXOL [Concomitant]
     Active Substance: PACLITAXEL
     Dates: start: 20110902, end: 20111028
  2. CARBOPLATIN. [Suspect]
     Active Substance: CARBOPLATIN
     Dates: end: 20111028

REACTIONS (8)
  - Vomiting [None]
  - Hypophagia [None]
  - Hypotension [None]
  - Disease progression [None]
  - Intestinal perforation [None]
  - Tachycardia [None]
  - Diarrhoea [None]
  - Sepsis [None]

NARRATIVE: CASE EVENT DATE: 20111107
